FAERS Safety Report 24155995 (Version 3)
Quarter: 2024Q3

REPORT INFORMATION
  Report Type: Spontaneous
  Country: PT (occurrence: PT)
  Receive Date: 20240731
  Receipt Date: 20240910
  Transmission Date: 20241017
  Serious: Yes (Hospitalization, Other)
  Sender: AUROBINDO
  Company Number: PT-MYLANLABS-2024M1066791

PATIENT
  Age: 79 Year
  Sex: Female

DRUGS (7)
  1. ACETAMINOPHEN [Suspect]
     Active Substance: ACETAMINOPHEN
     Indication: Osteitis deformans
     Dosage: UNK
     Route: 065
  2. ACETAMINOPHEN [Suspect]
     Active Substance: ACETAMINOPHEN
     Indication: Pain
  3. TRAMADOL [Interacting]
     Active Substance: TRAMADOL\TRAMADOL HYDROCHLORIDE
     Indication: Osteitis deformans
     Dosage: UNK
     Route: 065
  4. TRAMADOL [Interacting]
     Active Substance: TRAMADOL\TRAMADOL HYDROCHLORIDE
     Indication: Pain
  5. TAPENTADOL [Interacting]
     Active Substance: TAPENTADOL
     Indication: Osteitis deformans
     Dosage: UNK
     Route: 065
  6. TAPENTADOL [Interacting]
     Active Substance: TAPENTADOL
     Indication: Pain
  7. ACETAMINOPHEN [Concomitant]
     Active Substance: ACETAMINOPHEN
     Indication: Osteitis deformans
     Dosage: UNK
     Route: 065

REACTIONS (13)
  - Mydriasis [Recovering/Resolving]
  - Pyrexia [Recovering/Resolving]
  - Tachypnoea [Recovering/Resolving]
  - Altered state of consciousness [Recovering/Resolving]
  - Tremor [Recovering/Resolving]
  - Leukocytosis [Recovering/Resolving]
  - Chills [Recovering/Resolving]
  - Livedo reticularis [Recovering/Resolving]
  - Unresponsive to stimuli [Recovering/Resolving]
  - Hyperthermia malignant [Recovered/Resolved]
  - Hyperthermia [Recovered/Resolved]
  - Serotonin syndrome [Recovering/Resolving]
  - Drug interaction [Unknown]
